FAERS Safety Report 9840201 (Version 3)
Quarter: 2014Q1

REPORT INFORMATION
  Report Type: Report from Study
  Country: US (occurrence: US)
  Receive Date: 20140124
  Receipt Date: 20140130
  Transmission Date: 20141002
  Serious: Yes (Hospitalization)
  Sender: FDA-Public Use
  Company Number: US-ROCHE-1323312

PATIENT
  Sex: Female
  Weight: 44.68 kg

DRUGS (24)
  1. XOLAIR [Suspect]
     Indication: PRODUCT USED FOR UNKNOWN INDICATION
     Route: 058
  2. BENEFIBER [Concomitant]
     Route: 048
  3. ACETAMINOPHEN [Concomitant]
     Route: 048
  4. ALBUTEROL [Concomitant]
     Dosage: 2 PUFFS BY MOUTH EVERY 4-6 HOURS AS NEEDED.
     Route: 065
  5. ASCORBIC ACID [Concomitant]
     Route: 048
  6. AZELASTINE [Concomitant]
     Dosage: 1 DROP BOTH EYES 2X A DAY
     Route: 065
  7. GUAR GUM [Concomitant]
     Route: 048
  8. BIOTIN [Concomitant]
     Route: 048
  9. BUDESONIDE [Concomitant]
     Dosage: 0.5 MG/2 ML
     Route: 065
  10. CALCIUM CITRATE WITH VITAMIN D3 [Concomitant]
     Route: 065
  11. COLACE [Concomitant]
     Route: 048
  12. CYCLOSPORIN [Concomitant]
     Dosage: 1 DROP EACH EYE TWICE A DAY.
     Route: 065
  13. EPINEPHRINE [Concomitant]
     Dosage: INJECT CONTENTS OF 1 PEN INTO THIGH AS NEEDED FOR ANAPHYLAXIS.
     Route: 065
  14. ESTRADIOL [Concomitant]
     Dosage: VEGL CREAM
     Route: 065
  15. HYDROCHLOROTHIAZIDE [Concomitant]
     Dosage: 1 TABLET BY MOUTH DAILY
     Route: 048
  16. INSULIN ASPART [Concomitant]
     Dosage: INJECT SUBCUTANEOUS PER SLIDING SCALE UP TO 36 UNITS DAILY
     Route: 065
  17. HYDROCORTISONE [Concomitant]
     Dosage: TOPICAL CREAM
     Route: 065
  18. RANITIDINE [Concomitant]
     Route: 048
  19. TRIAMCINOLONE ACETONIDE [Concomitant]
     Dosage: 55 MCG
     Route: 065
  20. ZOLEDRONIC ACID [Concomitant]
     Route: 065
  21. FLUTICASONE [Concomitant]
     Dosage: 1 PUFF TWICE A DAY
     Route: 065
  22. METFORMIN [Concomitant]
     Route: 048
  23. MINERAL OIL [Concomitant]
     Dosage: TOPICAL TO BOTH EARS DAILY AS NEEDED
     Route: 065
  24. PRAVASTATIN [Concomitant]
     Route: 048

REACTIONS (6)
  - Spinal operation [Unknown]
  - Vertigo [Unknown]
  - Post-traumatic neck syndrome [Recovering/Resolving]
  - Neck pain [Unknown]
  - Diarrhoea [Recovering/Resolving]
  - Dyspepsia [Unknown]
